FAERS Safety Report 16003724 (Version 1)
Quarter: 2019Q1

REPORT INFORMATION
  Report Type: Spontaneous
  Country: DE (occurrence: DE)
  Receive Date: 20190226
  Receipt Date: 20190226
  Transmission Date: 20190418
  Serious: Yes (Death, Other)
  Sender: FDA-Public Use
  Company Number: DE-AUROBINDO-AUR-APL-2019-009226

PATIENT

DRUGS (11)
  1. LEFLUNOMIDE. [Suspect]
     Active Substance: LEFLUNOMIDE
     Dosage: 20 MILLIGRAM, ONCE A DAY (20 MG, QD)
     Route: 065
  2. CIDOFOVIR. [Suspect]
     Active Substance: CIDOFOVIR
     Indication: CYTOMEGALOVIRUS VIRAEMIA
     Dosage: 5 MILLIGRAM/KILOGRAM IN TOTAL (5 MG/KG, ONCE/SINGLE)
     Route: 065
  3. FOSCARNET [Suspect]
     Active Substance: FOSCARNET
     Indication: CYTOMEGALOVIRUS VIRAEMIA
     Dosage: 180 MILLIGRAM/KILOGRAM, DAILY (90 MG/KG, BID)
     Route: 065
  4. GANCICLOVIR. [Suspect]
     Active Substance: GANCICLOVIR
     Indication: CYTOMEGALOVIRUS VIRAEMIA
     Dosage: 10 MILLIGRAM/KILOGRAM, DAILY (5 MG/KG, BID)
     Route: 042
  5. FOSCARNET [Suspect]
     Active Substance: FOSCARNET
     Indication: ANTIVIRAL TREATMENT
     Dosage: UNK
     Route: 065
  6. VALGANCICLOVIR. [Suspect]
     Active Substance: VALGANCICLOVIR
     Indication: CYTOMEGALOVIRUS VIRAEMIA
     Dosage: 1800 MILLIGRAM, DAILY (900 MG, BID)
     Route: 065
  7. LEFLUNOMIDE. [Suspect]
     Active Substance: LEFLUNOMIDE
     Indication: CYTOMEGALOVIRUS VIRAEMIA
     Dosage: 100 MILLIGRAM, ONCE A DAY (100 MG, QD)
     Route: 065
  8. VALGANCICLOVIR. [Suspect]
     Active Substance: VALGANCICLOVIR
     Indication: PROPHYLAXIS
     Dosage: 900 MILLIGRAM, DAILY (450 MG, BID)
     Route: 065
  9. TACROLIMUS. [Suspect]
     Active Substance: TACROLIMUS
     Indication: IMMUNOSUPPRESSION
     Dosage: UNK
     Route: 065
  10. BRINCIDOFOVIR [Suspect]
     Active Substance: BRINCIDOFOVIR
     Indication: CYTOMEGALOVIRUS VIRAEMIA
     Dosage: 100 MILLIGRAM EVERY 2 WEEKS (100 MG, BIW)
     Route: 065
  11. PREDNISOLONE. [Suspect]
     Active Substance: PREDNISOLONE
     Indication: IMMUNOSUPPRESSANT DRUG THERAPY
     Dosage: 5 MILLIGRAM/KILOGRAM IN TOTAL (5 MG/KG, ONCE/SINGLE)
     Route: 042

REACTIONS (6)
  - Cytomegalovirus colitis [Fatal]
  - Drug resistance [Unknown]
  - Off label use [Unknown]
  - Graft versus host disease in gastrointestinal tract [Fatal]
  - Nephropathy toxic [Unknown]
  - Pathogen resistance [Unknown]
